FAERS Safety Report 14477646 (Version 2)
Quarter: 2018Q3

REPORT INFORMATION
  Report Type: Report from Study
  Country: US (occurrence: US)
  Receive Date: 20180201
  Receipt Date: 20180723
  Transmission Date: 20181010
  Serious: Yes (Death, Hospitalization)
  Sender: FDA-Public Use
  Company Number: US-EXELIXIS-CABO-17009612

PATIENT
  Age: 76 Year
  Sex: Female

DRUGS (12)
  1. COMETRIQ [Suspect]
     Active Substance: CABOZANTINIB S-MALATE
     Indication: THYROID CANCER
     Dosage: 100 MG, QD
     Route: 048
     Dates: start: 20161219
  2. VITAMIN B [Concomitant]
     Active Substance: VITAMIN B
  3. AMLODIPINE [Concomitant]
     Active Substance: AMLODIPINE BESYLATE
  4. COMETRIQ [Suspect]
     Active Substance: CABOZANTINIB S-MALATE
     Dosage: 140 MG, QD
     Route: 048
     Dates: start: 20170107, end: 2017
  5. XARELTO [Concomitant]
     Active Substance: RIVAROXABAN
  6. INFED [Concomitant]
     Active Substance: IRON DEXTRAN
  7. FERAHEME [Concomitant]
     Active Substance: FERUMOXYTOL NON-STOICHIOMETRIC MAGNETITE
  8. POTASSIUM CHLORIDE. [Concomitant]
     Active Substance: POTASSIUM CHLORIDE
  9. VITAMIN D [Concomitant]
     Active Substance: CHOLECALCIFEROL
  10. SYNTHROID [Concomitant]
     Active Substance: LEVOTHYROXINE SODIUM
  11. COMETRIQ [Suspect]
     Active Substance: CABOZANTINIB S-MALATE
     Dosage: 60 MG, QD
     Route: 048
     Dates: start: 2017, end: 20170627
  12. POTASSIUM [Concomitant]
     Active Substance: POTASSIUM

REACTIONS (7)
  - Blister [Unknown]
  - Malignant neoplasm progression [Fatal]
  - Renal impairment [Unknown]
  - Gait disturbance [Unknown]
  - Metastases to liver [Unknown]
  - Metabolic encephalopathy [Not Recovered/Not Resolved]
  - Diarrhoea [Unknown]

NARRATIVE: CASE EVENT DATE: 20170627
